FAERS Safety Report 17289068 (Version 2)
Quarter: 2020Q1

REPORT INFORMATION
  Report Type: Report from Study
  Country: NL (occurrence: NL)
  Receive Date: 20200120
  Receipt Date: 20200225
  Transmission Date: 20200409
  Serious: Yes (Other)
  Sender: FDA-Public Use
  Company Number: NL-MYLANLABS-2019M1049465

PATIENT
  Age: 34 Year
  Sex: Female

DRUGS (3)
  1. VITAMIN D                          /00107901/ [Concomitant]
     Active Substance: ERGOCALCIFEROL
     Indication: FATIGUE
     Dosage: UNK
     Dates: start: 202001
  2. GLATIRAMEERACETAAT MYLAN 40 MG/ML [Suspect]
     Active Substance: GLATIRAMER ACETATE
     Dosage: 40 MILLIGRAM, 3XW
     Route: 058
     Dates: start: 20181102
  3. GLATIRAMEERACETAAT MYLAN 40 MG/ML [Suspect]
     Active Substance: GLATIRAMER ACETATE
     Indication: MULTIPLE SCLEROSIS
     Dosage: 40 MILLIGRAM, 3XW
     Route: 058
     Dates: start: 20181102

REACTIONS (2)
  - Eye disorder [Recovered/Resolved]
  - Drug ineffective [Not Recovered/Not Resolved]

NARRATIVE: CASE EVENT DATE: 201903
